FAERS Safety Report 9856153 (Version 1)
Quarter: 2014Q1

REPORT INFORMATION
  Report Type: Spontaneous
  Country: US (occurrence: US)
  Receive Date: 20140130
  Receipt Date: 20140130
  Transmission Date: 20141002
  Serious: Yes (Death, Other)
  Sender: FDA-Public Use
  Company Number: US-ELI_LILLY_AND_COMPANY-US201401010243

PATIENT
  Age: 103 Year
  Sex: Male

DRUGS (2)
  1. FORTEO [Suspect]
     Indication: OSTEOPOROSIS
     Dosage: 20 UG, UNKNOWN
     Route: 065
     Dates: end: 2009
  2. FORTEO [Suspect]
     Indication: FRACTURE

REACTIONS (3)
  - Subdural haematoma [Fatal]
  - Fall [Unknown]
  - Head injury [Unknown]
